FAERS Safety Report 22181877 (Version 1)
Quarter: 2023Q2

REPORT INFORMATION
  Report Type: Spontaneous
  Country: DE (occurrence: DE)
  Receive Date: 20230406
  Receipt Date: 20230406
  Transmission Date: 20230721
  Serious: Yes (Congenital Anomaly, Other)
  Sender: FDA-Public Use
  Company Number: DE-EMBRYOTOX-202211139

PATIENT
  Sex: Male
  Weight: .49 kg

DRUGS (1)
  1. AZITHROMYCIN [Suspect]
     Active Substance: AZITHROMYCIN
     Indication: Chlamydial infection
     Dosage: 1500 MG, 1X/DAY
     Route: 064
     Dates: start: 20210330, end: 20210331

REACTIONS (3)
  - Maternal exposure during pregnancy [Unknown]
  - Hypospadias [Unknown]
  - Foetal growth restriction [Unknown]

NARRATIVE: CASE EVENT DATE: 20210330
